FAERS Safety Report 24918563 (Version 1)
Quarter: 2025Q1

REPORT INFORMATION
  Report Type: Spontaneous
  Country: CN (occurrence: CN)
  Receive Date: 20250203
  Receipt Date: 20250203
  Transmission Date: 20250409
  Serious: Yes (Other)
  Sender: JOHNSON AND JOHNSON
  Company Number: CN-JNJFOC-20250164647

PATIENT
  Age: 31 Year
  Sex: Female

DRUGS (3)
  1. PALIPERIDONE [Suspect]
     Active Substance: PALIPERIDONE
     Indication: Psychiatric symptom
     Route: 048
     Dates: start: 20241211, end: 20250120
  2. PALIPERIDONE [Suspect]
     Active Substance: PALIPERIDONE
     Dosage: (AT EVERY NIGHT)
     Route: 048
     Dates: start: 20241209
  3. OLANZAPINE [Suspect]
     Active Substance: OLANZAPINE
     Indication: Psychiatric symptom
     Dates: start: 20241223, end: 20250120

REACTIONS (5)
  - Hypomenorrhoea [Unknown]
  - Galactorrhoea [Unknown]
  - Hyperprolactinaemia [Unknown]
  - Disorganised speech [Unknown]
  - Dysphoria [Unknown]

NARRATIVE: CASE EVENT DATE: 20250116
